FAERS Safety Report 14899014 (Version 1)
Quarter: 2018Q2

REPORT INFORMATION
  Report Type: Spontaneous
  Country: US (occurrence: US)
  Receive Date: 20180516
  Receipt Date: 20180516
  Transmission Date: 20180711
  Serious: No
  Sender: FDA-Public Use
  Company Number: US-ENDO PHARMACEUTICALS INC-2018-016499

PATIENT
  Sex: Male

DRUGS (2)
  1. AMLODIPINE BESYLATE + VALSARTAN [Suspect]
     Active Substance: AMLODIPINE BESYLATE\VALSARTAN
     Indication: HYPERTENSION
     Dosage: 1 DF, OD
     Route: 065
     Dates: start: 20180122
  2. ALEGRA [Concomitant]
     Indication: NASAL CONGESTION

REACTIONS (1)
  - Drug ineffective [Unknown]
